FAERS Safety Report 6863383-9 (Version None)
Quarter: 2010Q3

REPORT INFORMATION
  Report Type: 
  Country: None (occurrence: None)
  Receive Date: 20100719
  Receipt Date: 20100713
  Transmission Date: 20110219
  Serious: Yes (Other)
  Sender: FDA-Public Use
  Company Number: 2010SP038750

PATIENT
  Age: 35 Year
  Sex: Male

DRUGS (1)
  1. REBETOL [Suspect]
     Indication: PRODUCT USED FOR UNKNOWN INDICATION

REACTIONS (10)
  - BLOOD PRESSURE INCREASED [None]
  - BONE PAIN [None]
  - COUGH [None]
  - GINGIVAL PAIN [None]
  - INCREASED TENDENCY TO BRUISE [None]
  - INSOMNIA [None]
  - MYALGIA [None]
  - NASAL CONGESTION [None]
  - TONGUE DISORDER [None]
  - WEIGHT DECREASED [None]
